FAERS Safety Report 6680941-5 (Version None)
Quarter: 2010Q2

REPORT INFORMATION
  Report Type: 
  Country: None (occurrence: None)
  Receive Date: 20100414
  Receipt Date: 20100408
  Transmission Date: 20101027
  Serious: Yes (Hospitalization, Other)
  Sender: FDA-Public Use
  Company Number: CA-BAYER-201015422NA

PATIENT
  Age: 43 Year
  Sex: Female
  Weight: 57 kg

DRUGS (1)
  1. YASMIN [Suspect]
     Indication: ACNE
     Route: 048
     Dates: start: 20080101

REACTIONS (4)
  - BACK PAIN [None]
  - GALLBLADDER DISORDER [None]
  - MALAISE [None]
  - MUSCULOSKELETAL CHEST PAIN [None]
